FAERS Safety Report 24121539 (Version 1)
Quarter: 2024Q3

REPORT INFORMATION
  Report Type: Spontaneous
  Country: US (occurrence: None)
  Receive Date: 20240720
  Receipt Date: 20240720
  Transmission Date: 20241016
  Serious: Yes (Other)
  Sender: Public
  Company Number: None

PATIENT
  Age: 14 Year
  Sex: Female
  Weight: 58.5 kg

DRUGS (1)
  1. FLUPHENAZINE [Suspect]
     Active Substance: FLUPHENAZINE
     Indication: Tourette^s disorder
     Dosage: FREQUENCY : DAILY;?
     Route: 048
     Dates: start: 20240530

REACTIONS (1)
  - Dystonia [None]

NARRATIVE: CASE EVENT DATE: 20240718
